FAERS Safety Report 10985285 (Version 1)
Quarter: 2015Q2

REPORT INFORMATION
  Report Type: Spontaneous
  Country: US (occurrence: US)
  Receive Date: 20150404
  Receipt Date: 20150404
  Transmission Date: 20150821
  Serious: No
  Sender: FDA-Public Use
  Company Number: US-SA-2014SA076049

PATIENT
  Age: 15 Year
  Sex: Female

DRUGS (1)
  1. ALLEGRA-D [Suspect]
     Active Substance: FEXOFENADINE\PSEUDOEPHEDRINE
     Indication: PRODUCT USED FOR UNKNOWN INDICATION
     Dosage: FREQUENCY: WEEKDAYS?STARTED FROM A FEW WEEKS
     Route: 048
     Dates: start: 2014

REACTIONS (3)
  - Headache [Unknown]
  - Frequent bowel movements [Unknown]
  - Abdominal pain upper [Unknown]
